FAERS Safety Report 22108109 (Version 1)
Quarter: 2023Q1

REPORT INFORMATION
  Report Type: Spontaneous
  Country: US (occurrence: US)
  Receive Date: 20230317
  Receipt Date: 20230317
  Transmission Date: 20230417
  Serious: Yes (Hospitalization)
  Sender: FDA-Public Use
  Company Number: US-SA-SAC20230316000517

PATIENT
  Age: 38 Year
  Sex: Female
  Weight: 119.29 kg

DRUGS (32)
  1. AUBAGIO [Suspect]
     Active Substance: TERIFLUNOMIDE
     Indication: Multiple sclerosis
     Dosage: 14 MG, QD
     Route: 048
     Dates: start: 20140528
  2. AUBAGIO [Suspect]
     Active Substance: TERIFLUNOMIDE
     Indication: Ill-defined disorder
  3. LAMICTAL [Concomitant]
     Active Substance: LAMOTRIGINE
  4. TRESIBA [Concomitant]
     Active Substance: INSULIN DEGLUDEC
  5. FISH OIL [Concomitant]
     Active Substance: FISH OIL
  6. REGLAN [Concomitant]
     Active Substance: METOCLOPRAMIDE HYDROCHLORIDE
  7. AMITIZA [Concomitant]
     Active Substance: LUBIPROSTONE
  8. VITAMIN B6 [Concomitant]
     Active Substance: PYRIDOXINE HYDROCHLORIDE
  9. AMITRIPTYLINE HYDROCHLORIDE [Concomitant]
     Active Substance: AMITRIPTYLINE HYDROCHLORIDE
  10. VITAMIN B12 [Concomitant]
     Active Substance: CYANOCOBALAMIN
  11. OMEPRAZOLE [Concomitant]
     Active Substance: OMEPRAZOLE
  12. LASIX [Concomitant]
     Active Substance: FUROSEMIDE
  13. VASCEPA [Concomitant]
     Active Substance: ICOSAPENT ETHYL
  14. OZEMPIC [Concomitant]
     Active Substance: SEMAGLUTIDE
  15. FARXIGA [Concomitant]
     Active Substance: DAPAGLIFLOZIN PROPANEDIOL
  16. ZOFRAN [Concomitant]
     Active Substance: ONDANSETRON HYDROCHLORIDE
  17. VITAMIN A [Concomitant]
     Active Substance: VITAMIN A
  18. .ALPHA.-TOCOPHEROL [Concomitant]
     Active Substance: .ALPHA.-TOCOPHEROL
  19. TYLENOL [Concomitant]
     Active Substance: ACETAMINOPHEN
  20. RITALIN [Concomitant]
     Active Substance: METHYLPHENIDATE HYDROCHLORIDE
  21. RANEXA [Concomitant]
     Active Substance: RANOLAZINE
  22. OMEPRAZOLE [Concomitant]
     Active Substance: OMEPRAZOLE
  23. PHENERGAN [Concomitant]
     Active Substance: PROMETHAZINE HYDROCHLORIDE
  24. MS CONTIN [Concomitant]
     Active Substance: MORPHINE SULFATE
  25. METOPROLOL TARTRATE [Concomitant]
     Active Substance: METOPROLOL TARTRATE
  26. LEXAPRO [Concomitant]
     Active Substance: ESCITALOPRAM OXALATE
  27. LANTUS [Concomitant]
     Active Substance: INSULIN GLARGINE
  28. LAMOTRIGINE [Concomitant]
     Active Substance: LAMOTRIGINE
  29. HUMALOG [Concomitant]
     Active Substance: INSULIN LISPRO
  30. FENOFIBRATE [Concomitant]
     Active Substance: FENOFIBRATE
  31. ASPIRIN [Concomitant]
     Active Substance: ASPIRIN
  32. ATORVASTATIN CALCIUM [Concomitant]
     Active Substance: ATORVASTATIN CALCIUM

REACTIONS (2)
  - Hospitalisation [Unknown]
  - Product use in unapproved indication [Unknown]

NARRATIVE: CASE EVENT DATE: 20140528
